FAERS Safety Report 6204723-3 (Version None)
Quarter: 2009Q2

REPORT INFORMATION
  Report Type: 
  Country: None (occurrence: None)
  Receive Date: 20090527
  Receipt Date: 20090520
  Transmission Date: 20091009
  Serious: Yes (Hospitalization)
  Sender: FDA-Public Use
  Company Number: PHHY2009JP02701

PATIENT
  Sex: Male
  Weight: 72 kg

DRUGS (6)
  1. LAMISIL [Suspect]
     Dosage: UNK
     Route: 048
     Dates: start: 20090108, end: 20090120
  2. RENIVACE [Concomitant]
     Indication: HYPERTENSION
     Dosage: 5 MG, UNK
     Route: 048
  3. HARNAL [Concomitant]
     Dosage: 0.2 MG
     Route: 048
  4. LASIX [Concomitant]
     Indication: HYPERTENSION
     Dosage: 20 MG, UNK
     Route: 048
  5. LASIX [Concomitant]
     Indication: ERYTHEMA
     Dosage: 20 MG, UNK
     Route: 042
  6. SEREVENT [Concomitant]
     Indication: EMPHYSEMA
     Dosage: 100 UG, UNK

REACTIONS (6)
  - ASPARTATE AMINOTRANSFERASE INCREASED [None]
  - BLOOD LACTATE DEHYDROGENASE INCREASED [None]
  - BLOOD UREA INCREASED [None]
  - C-REACTIVE PROTEIN INCREASED [None]
  - ERYTHEMA [None]
  - OEDEMA [None]
